FAERS Safety Report 4553358-7 (Version None)
Quarter: 2005Q1

REPORT INFORMATION
  Report Type: 
  Country: None (occurrence: None)
  Receive Date: 20050114
  Receipt Date: 20050106
  Transmission Date: 20050727
  Serious: Yes (Hospitalization, Other)
  Sender: FDA-Public Use
  Company Number: TR-ABBOTT-05P-161-0285638-00

PATIENT
  Age: 45 Year
  Sex: Male

DRUGS (4)
  1. CALCITRIOL [Suspect]
     Indication: HYPERPARATHYROIDISM SECONDARY
     Route: 042
     Dates: start: 19930101, end: 20010201
  2. CALCITRIOL [Suspect]
     Dosage: UP TO 18MG/DL PER WEEK WAS USED
     Route: 042
     Dates: start: 20010201, end: 20010501
  3. CALCIUM PHOSPHORUS BINDERS [Concomitant]
     Indication: HAEMODIALYSIS
     Dosage: NOT REPORTED
     Route: 048
  4. ALUMINIUM PHOSPHORUS BINDERS [Concomitant]
     Indication: HAEMODIALYSIS
     Dosage: NOT REPORTED
     Route: 048
     Dates: start: 19930101, end: 19950101

REACTIONS (8)
  - ARTHRALGIA [None]
  - CALCINOSIS [None]
  - CONDITION AGGRAVATED [None]
  - HYPERPARATHYROIDISM SECONDARY [None]
  - JOINT RANGE OF MOTION DECREASED [None]
  - JOINT SWELLING [None]
  - LOCAL SWELLING [None]
  - PRURITUS [None]
